FAERS Safety Report 18265548 (Version 1)
Quarter: 2020Q3

REPORT INFORMATION
  Report Type: Spontaneous
  Country: US (occurrence: US)
  Receive Date: 20200915
  Receipt Date: 20200915
  Transmission Date: 20201103
  Serious: Yes (Hospitalization, Other)
  Sender: FDA-Public Use
  Company Number: US-STRIDES ARCOLAB LIMITED-2020SP005645

PATIENT
  Age: 66 Year
  Sex: Male

DRUGS (7)
  1. TACROLIMUS. [Suspect]
     Active Substance: TACROLIMUS
     Indication: LUNG TRANSPLANT
     Dosage: UNK; TARGET GOAL OF 6?9
     Route: 065
  2. PREDNISOLONE. [Suspect]
     Active Substance: PREDNISOLONE
     Indication: LUNG TRANSPLANT
     Dosage: 15 MILLIGRAM DAILY
     Route: 065
  3. PREDNISOLONE. [Suspect]
     Active Substance: PREDNISOLONE
     Dosage: 5 MILLIGRAM
     Route: 065
  4. VALGANCICLOVIR. [Concomitant]
     Active Substance: VALGANCICLOVIR
     Indication: ANTIVIRAL PROPHYLAXIS
     Dosage: UNK
     Route: 065
  5. ALEMTUZUMAB [Suspect]
     Active Substance: ALEMTUZUMAB
     Indication: LUNG TRANSPLANT
     Dosage: 30 MILLIGRAM
     Route: 065
  6. TACROLIMUS. [Suspect]
     Active Substance: TACROLIMUS
     Dosage: UNK; GAOL 2?5
     Route: 065
  7. WARFARIN [Concomitant]
     Active Substance: WARFARIN
     Indication: DEEP VEIN THROMBOSIS
     Dosage: UNK
     Route: 065

REACTIONS (14)
  - Abdominal tenderness [Unknown]
  - Abdominal discomfort [Unknown]
  - Necrosis [Unknown]
  - Abdominal pain [Unknown]
  - Lymphadenopathy mediastinal [Unknown]
  - Post transplant lymphoproliferative disorder [Unknown]
  - Abdominal lymphadenopathy [Unknown]
  - Off label use [Unknown]
  - Anaemia [Unknown]
  - Intestinal perforation [Unknown]
  - Haematochezia [Unknown]
  - Large intestinal ulcer [Unknown]
  - Epstein-Barr virus infection [Recovered/Resolved]
  - Diarrhoea haemorrhagic [Unknown]
